FAERS Safety Report 8262810 (Version 7)
Quarter: 2013Q4

REPORT INFORMATION
  Report Type: Spontaneous
  Country: US (occurrence: US)
  Receive Date: 20111124
  Receipt Date: 20131112
  Transmission Date: 20140711
  Serious: Yes (Other)
  Sender: FDA-Public Use
  Company Number: US-ROCHE-1015926

PATIENT
  Age: 15 Year
  Sex: Male
  Weight: 61.29 kg

DRUGS (3)
  1. ACCUTANE [Suspect]
     Indication: ACNE
     Route: 048
     Dates: start: 199808, end: 199902
  2. ACCUTANE [Suspect]
     Route: 048
     Dates: start: 20010511, end: 200107
  3. ACCUTANE [Suspect]
     Route: 048
     Dates: start: 200111, end: 20011201

REACTIONS (7)
  - Colitis ulcerative [Unknown]
  - Crohn^s disease [Unknown]
  - Inflammatory bowel disease [Unknown]
  - Depression [Unknown]
  - Injury [Unknown]
  - Acne [Unknown]
  - Generalised erythema [Unknown]
